FAERS Safety Report 8445245-9 (Version None)
Quarter: 2012Q2

REPORT INFORMATION
  Report Type: 
  Country: None (occurrence: None)
  Receive Date: 20120605
  Receipt Date: 20120529
  Transmission Date: 20120825
  Serious: Yes (Other)
  Sender: FDA-Public Use
  Company Number: WAES 1205USA00026

PATIENT
  Age: 16 Year
  Sex: Female

DRUGS (14)
  1. CISPLATIN [Suspect]
     Indication: BONE SARCOMA
     Dosage: 63 MG/DAILY; IV
     Route: 042
     Dates: start: 20120417, end: 20120420
  2. DIHYDROCODEINE BITARTRATE INJ [Concomitant]
  3. METOCLOPRAMIDE [Concomitant]
  4. DEXAMETHASONE [Suspect]
     Indication: PROPHYLAXIS OF NAUSEA AND VOMITING
     Dosage: 12 ML, IV; 5 ML/TID, IV
     Route: 042
     Dates: start: 20120417, end: 20120417
  5. DEXAMETHASONE [Suspect]
     Indication: PROPHYLAXIS OF NAUSEA AND VOMITING
     Dosage: 12 ML, IV; 5 ML/TID, IV
     Route: 042
     Dates: start: 20120418, end: 20120420
  6. ACETAMINOPHEN [Concomitant]
  7. EMEND [Suspect]
     Indication: PROPHYLAXIS OF NAUSEA AND VOMITING
     Dosage: 125 MG/1X, PO; 80 MG/1X, PO; 80 MG/1X, PO;
     Route: 048
     Dates: start: 20120417, end: 20120417
  8. EMEND [Suspect]
     Indication: PROPHYLAXIS OF NAUSEA AND VOMITING
     Dosage: 125 MG/1X, PO; 80 MG/1X, PO; 80 MG/1X, PO;
     Route: 048
     Dates: start: 20120418, end: 20120418
  9. EMEND [Suspect]
     Indication: PROPHYLAXIS OF NAUSEA AND VOMITING
     Dosage: 125 MG/1X, PO; 80 MG/1X, PO; 80 MG/1X, PO;
     Route: 048
     Dates: start: 20120419, end: 20120419
  10. ONDANSETRON [Suspect]
     Indication: PROPHYLAXIS OF NAUSEA AND VOMITING
     Dosage: 8 MG/BID, PO
     Route: 048
     Dates: start: 20120417, end: 20120420
  11. AMETOP [Concomitant]
  12. ONDANSETRON HCL [Concomitant]
  13. DOXORUBICIN HCL [Suspect]
     Indication: BONE SARCOMA
     Dosage: 59 MG/DAILY, IV;
     Route: 042
     Dates: start: 20120417, end: 20120419
  14. LEVOMEPROMAZINE [Concomitant]

REACTIONS (1)
  - ELECTROCARDIOGRAM T WAVE INVERSION [None]
